FAERS Safety Report 6932201-2 (Version None)
Quarter: 2010Q3

REPORT INFORMATION
  Report Type: 
  Country: None (occurrence: None)
  Receive Date: 20100819
  Receipt Date: 20100816
  Transmission Date: 20110219
  Serious: Yes (Hospitalization)
  Sender: FDA-Public Use
  Company Number: BR-ROCHE-634811

PATIENT
  Sex: Female
  Weight: 63 kg

DRUGS (9)
  1. TOCILIZUMAB [Suspect]
     Indication: RHEUMATOID ARTHRITIS
     Dosage: DOSE: 8MG/KG (530 MG). FORM: INFUSION
     Route: 042
     Dates: start: 20091101
  2. RITUXIMAB [Suspect]
     Indication: RHEUMATOID ARTHRITIS
     Dosage: DOSE: 100 MG/ML. FORM: INFUSIONS
     Route: 042
     Dates: start: 20080815, end: 20080830
  3. METHOTREXATE [Concomitant]
  4. PRELONE [Concomitant]
     Indication: RHEUMATOID ARTHRITIS
  5. MAREVAN [Concomitant]
  6. FELDENE [Concomitant]
     Indication: RHEUMATOID ARTHRITIS
     Dosage: FREQUENCY: 1 TABLET DAILY
     Route: 048
  7. DORFLEX [Concomitant]
     Indication: ANALGESIC THERAPY
     Dosage: FREQUENCY: 3 TABLETS DAILY
     Route: 048
  8. FOLIN [Concomitant]
     Route: 048
  9. IOSOL [Concomitant]
     Dosage: DRUG REPORTED AS ISOL D

REACTIONS (11)
  - JOINT WARMTH [None]
  - MALAISE [None]
  - OCULAR HYPERAEMIA [None]
  - OEDEMA PERIPHERAL [None]
  - PAIN IN EXTREMITY [None]
  - PALLOR [None]
  - PRURITUS [None]
  - RHEUMATOID ARTHRITIS [None]
  - SKIN ATROPHY [None]
  - THROMBOSIS [None]
  - URTICARIA [None]
